FAERS Safety Report 4912809-6 (Version None)
Quarter: 2006Q1

REPORT INFORMATION
  Report Type: 
  Country: None (occurrence: None)
  Receive Date: 20060215
  Receipt Date: 20060203
  Transmission Date: 20060701
  Serious: Yes (Hospitalization)
  Sender: FDA-Public Use
  Company Number: JP-ROCHE-435358

PATIENT
  Age: 48 Year
  Sex: Male

DRUGS (4)
  1. TAMIFLU [Suspect]
     Indication: INFLUENZA
     Route: 048
     Dates: start: 20060118
  2. FLOMOX [Concomitant]
     Dosage: DOSE FORM REPORTED AS ORAL FORMULATION
     Route: 048
  3. COCARL [Concomitant]
     Dosage: DOSE FORM REPORTED AS ORAL FORMULATION
     Route: 048
  4. MUCOSTA [Concomitant]
     Dosage: DOSE FORM REPORTED AS ORAL FORMULATION
     Route: 048

REACTIONS (4)
  - ABNORMAL BEHAVIOUR [None]
  - ARRHYTHMIA [None]
  - CONVULSION [None]
  - LOSS OF CONSCIOUSNESS [None]
